FAERS Safety Report 5794131-1 (Version None)
Quarter: 2008Q2

REPORT INFORMATION
  Report Type: 
  Country: None (occurrence: None)
  Receive Date: 20080627
  Receipt Date: 20080617
  Transmission Date: 20081010
  Serious: Yes (Hospitalization, Disabling, Other)
  Sender: FDA-Public Use
  Company Number: US-MERCK-0804USA01086

PATIENT
  Age: 11 Year
  Sex: Male

DRUGS (9)
  1. SINGULAIR [Suspect]
     Indication: ASTHMA
     Route: 048
     Dates: start: 20041001, end: 20050701
  2. SINGULAIR [Suspect]
     Route: 048
     Dates: start: 20050701, end: 20050701
  3. SINGULAIR [Suspect]
     Route: 048
     Dates: start: 20050701, end: 20080401
  4. SINGULAIR [Suspect]
     Indication: HYPERSENSITIVITY
     Route: 048
     Dates: start: 20041001, end: 20050701
  5. SINGULAIR [Suspect]
     Route: 048
     Dates: start: 20050701, end: 20050701
  6. SINGULAIR [Suspect]
     Route: 048
     Dates: start: 20050701, end: 20080401
  7. ZYRTEC [Concomitant]
     Indication: RHINITIS ALLERGIC
     Route: 048
  8. CORTICOSTEROIDS (UNSPECIFIED) [Concomitant]
     Dates: end: 20060621
  9. PREDNISONE [Concomitant]
     Route: 065

REACTIONS (9)
  - ANXIETY [None]
  - ASTHMA [None]
  - DEPRESSION [None]
  - DISTURBANCE IN ATTENTION [None]
  - INSOMNIA [None]
  - PANIC ATTACK [None]
  - SLEEP DISORDER [None]
  - SOCIAL PHOBIA [None]
  - SUICIDAL IDEATION [None]
